FAERS Safety Report 6460916-1 (Version None)
Quarter: 2009Q4

REPORT INFORMATION
  Report Type: 
  Country: None (occurrence: None)
  Receive Date: 20091130
  Receipt Date: 20091117
  Transmission Date: 20100525
  Serious: Yes (Other)
  Sender: FDA-Public Use
  Company Number: US-JNJFOC-20091105881

PATIENT
  Sex: Female
  Weight: 63.05 kg

DRUGS (5)
  1. DURAGESIC-100 [Suspect]
     Route: 062
  2. DURAGESIC-100 [Suspect]
     Indication: NECK PAIN
     Route: 062
  3. DURAGESIC-100 [Suspect]
     Route: 062
     Dates: start: 20091113, end: 20091116
  4. TOPROL-XL [Suspect]
     Indication: CARDIAC DISORDER
     Route: 048
  5. NAPROSYN [Suspect]
     Indication: SCIATICA
     Route: 048

REACTIONS (8)
  - ABDOMINAL DISCOMFORT [None]
  - ALOPECIA [None]
  - CARDIAC DISORDER [None]
  - CARDIAC MURMUR [None]
  - HYPERTENSION [None]
  - INSOMNIA [None]
  - PRODUCT QUALITY ISSUE [None]
  - SCIATICA [None]
